FAERS Safety Report 12761896 (Version 3)
Quarter: 2017Q3

REPORT INFORMATION
  Report Type: Spontaneous
  Country: KY (occurrence: KY)
  Receive Date: 20160920
  Receipt Date: 20170922
  Transmission Date: 20171127
  Serious: No
  Sender: FDA-Public Use
  Company Number: KY-ABBVIE-16K-030-1730873-00

PATIENT
  Age: 29 Year
  Sex: Male
  Weight: 78.54 kg

DRUGS (2)
  1. HUMIRA [Suspect]
     Active Substance: ADALIMUMAB
     Indication: SPONDYLITIS
     Route: 058
     Dates: start: 20160825, end: 20160914
  2. HUMIRA [Suspect]
     Active Substance: ADALIMUMAB
     Route: 058
     Dates: start: 20161007

REACTIONS (4)
  - Fall [Unknown]
  - Abdominal injury [Unknown]
  - Splenomegaly [Not Recovered/Not Resolved]
  - Chest injury [Unknown]

NARRATIVE: CASE EVENT DATE: 20170914
